FAERS Safety Report 9851158 (Version 1)
Quarter: 2014Q1

REPORT INFORMATION
  Report Type: Spontaneous
  Country: US (occurrence: US)
  Receive Date: 20140128
  Receipt Date: 20140128
  Transmission Date: 20141002
  Serious: No
  Sender: FDA-Public Use
  Company Number: US-SANOFI-AVENTIS-2013SA018797

PATIENT
  Age: 73 Year
  Sex: Female

DRUGS (2)
  1. LASIX [Suspect]
     Route: 048
  2. AMBRISENTAN [Suspect]
     Indication: PULMONARY HYPERTENSION
     Route: 048
     Dates: start: 20121218

REACTIONS (1)
  - Oedema peripheral [Unknown]
